FAERS Safety Report 16512726 (Version 1)
Quarter: 2019Q3

REPORT INFORMATION
  Report Type: Spontaneous
  Country: SE (occurrence: SE)
  Receive Date: 20190701
  Receipt Date: 20190701
  Transmission Date: 20191004
  Serious: Yes (Life-Threatening)
  Sender: FDA-Public Use
  Company Number: SE-MYLANLABS-2019M1060914

PATIENT
  Age: 34 Year
  Sex: Female
  Weight: 54 kg

DRUGS (6)
  1. IMOVANE [Concomitant]
     Active Substance: ZOPICLONE
     Dosage: UNK UNK, PRN
  2. ATARAX [Concomitant]
     Active Substance: HYDROXYZINE HYDROCHLORIDE
     Dosage: UNK UNK, PRN
  3. VENLAFAXINE [Suspect]
     Active Substance: VENLAFAXINE HYDROCHLORIDE
     Indication: DEPRESSION
     Dosage: SUCCESSIV NEDTRAPPNING FR?N 150 MG TILL 37,5 MG MED 10 DAGAR P? RESPEKTIVE DOS.
     Dates: start: 201705, end: 20181230
  4. YASMINELLE [Concomitant]
     Active Substance: DROSPIRENONE
     Dosage: UNK
  5. LAMOTRIGINE. [Concomitant]
     Active Substance: LAMOTRIGINE
     Dosage: UNK
     Dates: start: 201810
  6. ANTABUS [Concomitant]
     Active Substance: DISULFIRAM
     Dosage: UNK
     Dates: start: 201812

REACTIONS (8)
  - Tenderness [Recovering/Resolving]
  - Mood swings [Recovering/Resolving]
  - Photophobia [Recovering/Resolving]
  - Dizziness [Recovering/Resolving]
  - Drug withdrawal syndrome [Recovering/Resolving]
  - Akathisia [Recovering/Resolving]
  - Self-injurious ideation [Recovering/Resolving]
  - Paraesthesia [Recovering/Resolving]

NARRATIVE: CASE EVENT DATE: 201812
